FAERS Safety Report 17677528 (Version 1)
Quarter: 2020Q2

REPORT INFORMATION
  Report Type: Spontaneous
  Country: US (occurrence: US)
  Receive Date: 20200416
  Receipt Date: 20200416
  Transmission Date: 20200714
  Serious: No
  Sender: FDA-Public Use
  Company Number: US-ROCHE-2430861

PATIENT
  Age: 65 Year
  Sex: Female

DRUGS (1)
  1. KADCYLA [Suspect]
     Active Substance: ADO-TRASTUZUMAB EMTANSINE
     Indication: EXTRAMAMMARY PAGET^S DISEASE
     Dosage: FROM THE END OF 2016 TO SPRING 2017, SHE RECEIVED SIX CYCLES OF TDM1.
     Route: 065

REACTIONS (5)
  - Haematuria [Unknown]
  - Epistaxis [Unknown]
  - Gingival bleeding [Unknown]
  - Vaginal haemorrhage [Unknown]
  - Fatigue [Unknown]
